FAERS Safety Report 5264149-6 (Version None)
Quarter: 2007Q1

REPORT INFORMATION
  Report Type: 
  Country: None (occurrence: None)
  Receive Date: 20070309
  Receipt Date: 20070227
  Transmission Date: 20070707
  Serious: Yes (Other)
  Sender: FDA-Public Use
  Company Number: 2007R3-06076

PATIENT
  Age: 31 Year
  Sex: Female

DRUGS (3)
  1. SERTRALINE HCL [Suspect]
     Indication: DEPRESSION
     Dosage: 50 MG, QD, ORAL
     Route: 048
  2. APO-LORAZEPAM(LORAZEPAM) [Suspect]
     Indication: ANXIETY
     Dosage: 1 MG, QD, ORAL
     Route: 048
  3. VALPROATE SODIUM [Suspect]
     Indication: CONVULSION
     Dosage: 1 G, QD, ORAL
     Route: 048

REACTIONS (7)
  - AGITATION [None]
  - CONFUSIONAL STATE [None]
  - HYPERVENTILATION [None]
  - HYPOAESTHESIA [None]
  - INSOMNIA [None]
  - PARAESTHESIA [None]
  - TREMOR [None]
